FAERS Safety Report 11809961 (Version 1)
Quarter: 2015Q4

REPORT INFORMATION
  Report Type: Spontaneous
  Country: US (occurrence: None)
  Receive Date: 20151207
  Receipt Date: 20151207
  Transmission Date: 20160305
  Serious: Yes (Disabling, Other)
  Sender: FDA-Public Use
  Company Number: None

PATIENT
  Age: 61 Year
  Sex: Female
  Weight: 72.58 kg

DRUGS (4)
  1. ATENOLOL. [Concomitant]
     Active Substance: ATENOLOL
  2. BENADRYL [Concomitant]
     Active Substance: DIPHENHYDRAMINE HYDROCHLORIDE
  3. IBUPROFEN. [Concomitant]
     Active Substance: IBUPROFEN
  4. LEVOFLOXACIN 500MG TAB ZYD= LEVAQUIN 500 MG TAB [Suspect]
     Active Substance: LEVOFLOXACIN
     Indication: DIVERTICULITIS
     Route: 048
     Dates: start: 20151119, end: 20151120

REACTIONS (18)
  - Peripheral swelling [None]
  - Fine motor skill dysfunction [None]
  - Muscle tightness [None]
  - Tinnitus [None]
  - Arthralgia [None]
  - Insomnia [None]
  - Pain in extremity [None]
  - Feeling cold [None]
  - Muscle spasms [None]
  - Fatigue [None]
  - Paraesthesia [None]
  - Musculoskeletal pain [None]
  - Chromaturia [None]
  - Musculoskeletal stiffness [None]
  - Dysgeusia [None]
  - Anxiety [None]
  - Asthenia [None]
  - Joint swelling [None]

NARRATIVE: CASE EVENT DATE: 20151119
